FAERS Safety Report 5636700-5 (Version None)
Quarter: 2008Q1

REPORT INFORMATION
  Report Type: 
  Country: None (occurrence: None)
  Receive Date: 20080219
  Receipt Date: 20080219
  Transmission Date: 20080703
  Serious: Yes (Life-Threatening, Other)
  Sender: FDA-Public Use
  Company Number: None

PATIENT
  Age: 22 Year
  Sex: Male
  Weight: 59.8748 kg

DRUGS (5)
  1. SERTRALINE HCL [Suspect]
     Indication: OBSESSIVE-COMPULSIVE DISORDER
     Dosage: 150 MG  1 TIME PER DAY  PO
     Route: 048
     Dates: start: 20060925, end: 20061114
  2. ADVAIR DISKUS 100/50 [Concomitant]
  3. NASONEX [Concomitant]
  4. ALBUTEROL [Concomitant]
  5. CLONAZEPAM [Concomitant]

REACTIONS (8)
  - DYSPHAGIA [None]
  - DYSPNOEA [None]
  - INCREASED UPPER AIRWAY SECRETION [None]
  - PANIC REACTION [None]
  - PHARMACEUTICAL PRODUCT COMPLAINT [None]
  - REACTION TO DRUG EXCIPIENTS [None]
  - SALIVARY HYPERSECRETION [None]
  - THERAPEUTIC RESPONSE UNEXPECTED WITH DRUG SUBSTITUTION [None]
